FAERS Safety Report 6297325-4 (Version None)
Quarter: 2009Q3

REPORT INFORMATION
  Report Type: 
  Country: None (occurrence: None)
  Receive Date: 20090805
  Receipt Date: 20090723
  Transmission Date: 20100115
  Serious: Yes (Other)
  Sender: FDA-Public Use
  Company Number: JP-PFIZER INC-2009248280

PATIENT

DRUGS (4)
  1. SOLANAX [Suspect]
     Route: 048
  2. PAXIL [Suspect]
     Route: 048
  3. CERCINE [Suspect]
     Route: 048
  4. RIZE [Suspect]
     Route: 048

REACTIONS (1)
  - DEAFNESS NEUROSENSORY [None]
